FAERS Safety Report 23370046 (Version 1)
Quarter: 2024Q1

REPORT INFORMATION
  Report Type: Spontaneous
  Country: US (occurrence: US)
  Receive Date: 20240105
  Receipt Date: 20240105
  Transmission Date: 20240409
  Serious: No
  Sender: FDA-Public Use
  Company Number: US-Covis Pharma GmbH-2023COV01975

PATIENT
  Sex: Female

DRUGS (1)
  1. OMNARIS [Suspect]
     Active Substance: CICLESONIDE
     Route: 045

REACTIONS (1)
  - Exposure via skin contact [Unknown]

NARRATIVE: CASE EVENT DATE: 20231220
